FAERS Safety Report 6751833-8 (Version None)
Quarter: 2010Q2

REPORT INFORMATION
  Report Type: 
  Country: None (occurrence: None)
  Receive Date: 20100602
  Receipt Date: 20100523
  Transmission Date: 20101027
  Serious: Yes (Hospitalization)
  Sender: FDA-Public Use
  Company Number: US-JNJFOC-20100509488

PATIENT
  Age: 2 Year
  Sex: Female
  Weight: 13.61 kg

DRUGS (5)
  1. CHILDREN'S TYLENOL SUSPENSION [Suspect]
     Indication: PYREXIA
     Dosage: TAKEN AS DIRECTED
     Route: 065
  2. CHILDREN'S TYLENOL SUSPENSION [Suspect]
     Indication: OROPHARYNGEAL PAIN
     Dosage: TAKEN AS DIRECTED
     Route: 065
  3. CHILDREN'S MOTRIN [Suspect]
     Indication: PYREXIA
     Dosage: TAKEN AS DIRECTED
     Route: 065
  4. CHILDREN'S MOTRIN [Suspect]
     Indication: OROPHARYNGEAL PAIN
     Dosage: TAKEN AS DIRECTED
     Route: 065
  5. ANTIBIOTIC [Suspect]
     Indication: NASOPHARYNGITIS

REACTIONS (4)
  - DEHYDRATION [None]
  - PNEUMONIA [None]
  - PRODUCT QUALITY ISSUE [None]
  - PYREXIA [None]
